FAERS Safety Report 18998982 (Version 1)
Quarter: 2021Q1

REPORT INFORMATION
  Report Type: Spontaneous
  Country: DE (occurrence: DE)
  Receive Date: 20210311
  Receipt Date: 20210311
  Transmission Date: 20210420
  Serious: Yes (Death, Life-Threatening, Hospitalization)
  Sender: FDA-Public Use
  Company Number: DE-TEVA-2021-DE-1887310

PATIENT
  Age: 66 Year
  Sex: Male

DRUGS (13)
  1. RIVAROXABAN [Concomitant]
     Active Substance: RIVAROXABAN
     Dosage: 20 MILLIGRAM DAILY;  1?0?0?0
  2. MORPHIN [Suspect]
     Active Substance: MORPHINE
     Dosage: 4 DOSAGE FORMS DAILY; 10 MG, 2?0?2?0
  3. FENTANYL. [Suspect]
     Active Substance: FENTANYL
     Dosage: 0.025 UG, CHANGE EVERY THREE DAYS
  4. TORASEMID [Concomitant]
     Active Substance: TORSEMIDE
     Dosage: 2.5 MILLIGRAM DAILY; 1?0?1?0
  5. FUROSEMID [Suspect]
     Active Substance: FUROSEMIDE
     Dosage: 80 MILLIGRAM DAILY; 1?1?0?0
  6. RANITIDIN [Concomitant]
     Active Substance: RANITIDINE HYDROCHLORIDE
     Dosage: 300 MILLIGRAM DAILY;  1?0?1?0
  7. BISOPROLOL [Concomitant]
     Active Substance: BISOPROLOL
     Dosage: 5 MILLIGRAM DAILY;  1?0?1?0
  8. INSULIN DETEMIR [Concomitant]
     Active Substance: INSULIN DETEMIR
     Dosage: 1 IE, 16?0?12?0
  9. DIGITOXIN [Concomitant]
     Active Substance: DIGITOXIN
     Dosage: .25 MILLIGRAM DAILY; 1?0?0?0
  10. ESOMEPRAZOL [Concomitant]
     Active Substance: ESOMEPRAZOLE
     Dosage: 40 MILLIGRAM DAILY;  1?0?0?0
  11. ATORVASTATIN [Concomitant]
     Active Substance: ATORVASTATIN
     Dosage: 80 MILLIGRAM DAILY; 0?0?1?0
  12. MACROGOL [Concomitant]
     Active Substance: POLYETHYLENE GLYCOLS
     Dosage: 1 DOSAGE FORMS DAILY; 0?0?1?0
  13. MELPERON [Concomitant]
     Active Substance: MELPERONE
     Dosage: 100 MILLIGRAM DAILY; 0?0?1?0

REACTIONS (5)
  - Disorientation [Unknown]
  - Dehydration [Unknown]
  - Confusional state [Unknown]
  - Constipation [Unknown]
  - General physical health deterioration [Unknown]
